FAERS Safety Report 25101053 (Version 2)
Quarter: 2025Q2

REPORT INFORMATION
  Report Type: Spontaneous
  Country: JP (occurrence: JP)
  Receive Date: 20250320
  Receipt Date: 20250408
  Transmission Date: 20250717
  Serious: Yes (Hospitalization)
  Sender: DAIICHI
  Company Number: JP-DSJP-DS-2025-130188-JP

PATIENT
  Age: 70 Year
  Sex: Female

DRUGS (1)
  1. ENHERTU [Suspect]
     Active Substance: FAM-TRASTUZUMAB DERUXTECAN-NXKI
     Indication: HER2 low breast cancer
     Route: 041

REACTIONS (1)
  - Respiratory distress [Recovering/Resolving]
